FAERS Safety Report 11569408 (Version 1)
Quarter: 2015Q3

REPORT INFORMATION
  Report Type: Spontaneous
  Country: US (occurrence: US)
  Receive Date: 20150929
  Receipt Date: 20150929
  Transmission Date: 20151125
  Serious: No
  Sender: FDA-Public Use
  Company Number: US-BAYER-2015-432383

PATIENT

DRUGS (1)
  1. ALEVE [Suspect]
     Active Substance: NAPROXEN SODIUM

REACTIONS (6)
  - Hypersensitivity [None]
  - Blister [None]
  - Swollen tongue [None]
  - Oral mucosal blistering [None]
  - Feeling abnormal [None]
  - Pain [None]
